FAERS Safety Report 23075821 (Version 1)
Quarter: 2023Q4

REPORT INFORMATION
  Report Type: Spontaneous
  Country: FR (occurrence: FR)
  Receive Date: 20231017
  Receipt Date: 20231017
  Transmission Date: 20240109
  Serious: Yes (Life-Threatening)
  Sender: FDA-Public Use
  Company Number: FR-AFSSAPS-AN2023000867

PATIENT
  Age: 26 Year
  Sex: Female
  Weight: 92 kg

DRUGS (9)
  1. RISPERIDONE [Interacting]
     Active Substance: RISPERIDONE
     Indication: Intellectual disability
     Dosage: 4 MILLIGRAM, DAILY
     Route: 048
     Dates: start: 20230312, end: 20230313
  2. CYAMEMAZINE [Interacting]
     Active Substance: CYAMEMAZINE
     Indication: Intellectual disability
     Dosage: 200 MILLIGRAM, AS NECESSA
     Route: 040
     Dates: start: 20230310, end: 20230313
  3. MIANSERIN HYDROCHLORIDE [Interacting]
     Active Substance: MIANSERIN HYDROCHLORIDE
     Indication: Intellectual disability
     Dosage: 30 MILLIGRAM, DAILY
     Route: 048
     Dates: start: 20230308, end: 202303
  4. PRAZEPAM [Suspect]
     Active Substance: PRAZEPAM
     Indication: Intellectual disability
     Dosage: 40 MILLIGRAM, DAILY
     Route: 048
     Dates: start: 20230310, end: 20230313
  5. LOXAPINE [Interacting]
     Active Substance: LOXAPINE
     Indication: Intellectual disability
     Dosage: 100 MILLIGRAM, DAILY
     Route: 048
     Dates: start: 20230308, end: 202303
  6. SERTRALINE [Interacting]
     Active Substance: SERTRALINE HYDROCHLORIDE
     Indication: Intellectual disability
     Dosage: 100 MILLIGRAM, DAILY
     Route: 048
     Dates: start: 20230310, end: 20230313
  7. TIAPRIDE HYDROCHLORIDE [Suspect]
     Active Substance: TIAPRIDE HYDROCHLORIDE
     Indication: Intellectual disability
     Dosage: 200 MILLIGRAM, DAILY
     Route: 048
     Dates: end: 202303
  8. TRIHEXYPHENIDYL [Concomitant]
     Active Substance: TRIHEXYPHENIDYL
     Indication: Product used for unknown indication
     Dosage: 5 MILLIGRAM, DAILY
     Route: 048
     Dates: end: 20230313
  9. TROSPIUM CHLORIDE [Concomitant]
     Active Substance: TROSPIUM CHLORIDE
     Indication: Product used for unknown indication
     Dosage: 40 MILLIGRAM, DAILY
     Route: 048

REACTIONS (2)
  - Seizure [Recovered/Resolved]
  - Drug interaction [Recovered/Resolved]

NARRATIVE: CASE EVENT DATE: 20230313
